FAERS Safety Report 7750661-4 (Version None)
Quarter: 2011Q3

REPORT INFORMATION
  Report Type: 
  Country: None (occurrence: None)
  Receive Date: 20110912
  Receipt Date: 20110827
  Transmission Date: 20111222
  Serious: Yes (Hospitalization)
  Sender: FDA-Public Use
  Company Number: 2011NA000071

PATIENT
  Age: 79 Year
  Sex: Female

DRUGS (3)
  1. PIROXICAM [Suspect]
     Indication: OSTEOARTHRITIS
     Dosage: 20 MG;QD;
  2. DICLOFENAC SODIUM [Suspect]
     Indication: OSTEOARTHRITIS
     Dosage: 25 MG;QD;
  3. NAPROXEN [Suspect]
     Indication: OSTEOARTHRITIS
     Dosage: 275 MG;QD;

REACTIONS (6)
  - HAEMOGLOBIN DECREASED [None]
  - GASTROINTESTINAL HAEMORRHAGE [None]
  - DIAPHRAGMATIC DISORDER [None]
  - INTESTINAL STENOSIS [None]
  - GASTROINTESTINAL EROSION [None]
  - SMALL INTESTINAL ULCER HAEMORRHAGE [None]
